FAERS Safety Report 20092140 (Version 1)
Quarter: 2021Q4

REPORT INFORMATION
  Report Type: Spontaneous
  Country: CO (occurrence: None)
  Receive Date: 20211119
  Receipt Date: 20211119
  Transmission Date: 20220304
  Serious: Yes (Death, Other)
  Sender: FDA-Public Use
  Company Number: 2021A811793

PATIENT

DRUGS (3)
  1. DURVALUMAB [Suspect]
     Active Substance: DURVALUMAB
     Indication: Lung neoplasm malignant
     Route: 042
     Dates: start: 202109, end: 2021
  2. CISPLATIN [Concomitant]
     Active Substance: CISPLATIN
  3. ETOPOSIDE [Concomitant]
     Active Substance: ETOPOSIDE

REACTIONS (2)
  - Pneumonitis [Fatal]
  - COVID-19 [Fatal]

NARRATIVE: CASE EVENT DATE: 20210101
